FAERS Safety Report 7378239-5 (Version None)
Quarter: 2011Q1

REPORT INFORMATION
  Report Type: 
  Country: None (occurrence: None)
  Receive Date: 20110328
  Receipt Date: 20110128
  Transmission Date: 20110831
  Serious: Yes (Life-Threatening, Hospitalization, Other)
  Sender: FDA-Public Use
  Company Number: B0697428A

PATIENT
  Sex: Female
  Weight: 74 kg

DRUGS (3)
  1. KARDEGIC [Suspect]
     Dosage: 75MG PER DAY
     Route: 048
  2. ARIXTRA [Suspect]
     Indication: PULMONARY EMBOLISM
     Dosage: 7.5MG PER DAY
     Route: 058
     Dates: start: 20110114, end: 20110117
  3. PREVISCAN [Suspect]
     Indication: PULMONARY EMBOLISM
     Dosage: 1TAB PER DAY
     Route: 048
     Dates: start: 20110115, end: 20110118

REACTIONS (4)
  - HAEMATURIA [None]
  - MUSCLE HAEMORRHAGE [None]
  - ANAEMIA [None]
  - BLOOD CREATININE INCREASED [None]
